FAERS Safety Report 14837695 (Version 1)
Quarter: 2018Q2

REPORT INFORMATION
  Report Type: Spontaneous
  Country: US (occurrence: US)
  Receive Date: 20180502
  Receipt Date: 20180502
  Transmission Date: 20180711
  Serious: Yes (Hospitalization)
  Sender: FDA-Public Use
  Company Number: US-BRAINTREE LABORATORIES-180214

PATIENT
  Age: 69 Year
  Sex: Male
  Weight: 70.76 kg

DRUGS (1)
  1. GOLYTELY [Suspect]
     Active Substance: POLYETHYLENE GLYCOL 3350\POTASSIUM CHLORIDE\SODIUM BICARBONATE\SODIUM CHLORIDE\SODIUM SULFATE ANHYDROUS
     Indication: OFF LABEL USE
     Route: 048
     Dates: start: 20180325, end: 20180325

REACTIONS (11)
  - Abdominal pain [None]
  - Dyspnoea [None]
  - Fatigue [None]
  - Vomiting [None]
  - Asthenia [None]
  - Abdominal distension [None]
  - Skin ulcer [None]
  - Hypertension [None]
  - Diarrhoea [None]
  - Headache [None]
  - Dysphonia [None]

NARRATIVE: CASE EVENT DATE: 20180325
